FAERS Safety Report 8608217 (Version 4)
Quarter: 2014Q2

REPORT INFORMATION
  Report Type: Spontaneous
  Country: US (occurrence: US)
  Receive Date: 20120611
  Receipt Date: 20140422
  Transmission Date: 20141212
  Serious: Yes (Hospitalization, Other)
  Sender: FDA-Public Use
  Company Number: US-ASTRAZENECA-2012SE35173

PATIENT
  Age: 57 Year
  Sex: Male
  Weight: 81.6 kg

DRUGS (25)
  1. NEXIUM [Suspect]
     Indication: FLATULENCE
     Route: 048
     Dates: start: 1982
  2. NEXIUM [Suspect]
     Indication: HYPERCHLORHYDRIA
     Route: 048
     Dates: start: 1982
  3. NEXIUM [Suspect]
     Indication: FLATULENCE
     Route: 048
     Dates: start: 20080923
  4. NEXIUM [Suspect]
     Indication: HYPERCHLORHYDRIA
     Route: 048
     Dates: start: 20080923
  5. BENICAR HCT [Concomitant]
     Dosage: 20-12.5 MG
     Dates: start: 20080923
  6. PLAVIX [Concomitant]
     Route: 048
     Dates: start: 20080923
  7. BUTALBITAL/APAP/CAFFEINE [Concomitant]
     Dates: start: 20080923
  8. LEXAPRO [Concomitant]
     Dates: start: 20080923
  9. LIPITOR [Concomitant]
     Dates: start: 20080923
  10. MECLIZINE [Concomitant]
     Indication: DIZZINESS
     Dates: start: 20080923
  11. METFORMIN [Concomitant]
     Dates: start: 20080923
  12. METOPROLOL [Concomitant]
     Dates: start: 20080923
  13. LYRICA [Concomitant]
     Indication: PAIN
     Dates: start: 20080923
  14. XYZAL [Concomitant]
     Dates: start: 20080930
  15. PRAVASTATIN [Concomitant]
     Dates: start: 20081017
  16. GABAPENTIN [Concomitant]
     Dates: start: 20081017
  17. OMEPRAZOLE [Concomitant]
     Dates: start: 20081017
  18. FENOFIBRATE [Concomitant]
     Indication: LIPIDS ABNORMAL
     Dates: start: 20081017
  19. LISINOPRIL [Concomitant]
     Indication: BLOOD PRESSURE ABNORMAL
     Route: 048
     Dates: start: 20081022
  20. LORATADINE [Concomitant]
     Dates: start: 20081022
  21. ACTOS [Concomitant]
     Dates: start: 20081022
  22. CADUET [Concomitant]
     Dosage: 10/40 TABLET TAKE 1 TABLET BY MOUTH DAILY
     Dates: start: 20081022
  23. JANUMET [Concomitant]
     Dosage: 50/500 MG TABLET TAKE 1 TABLET BY MOUTH QD WITH MEALS
     Dates: start: 20081022
  24. LOVAZA [Concomitant]
     Dates: start: 20081022
  25. NAPROXEN [Concomitant]
     Indication: DYSPEPSIA
     Dates: start: 20111109

REACTIONS (14)
  - Hip fracture [Unknown]
  - Myocardial infarction [Unknown]
  - Osteoporosis [Unknown]
  - Spinal fracture [Unknown]
  - Wrist fracture [Unknown]
  - Osteopenia [Unknown]
  - Ankle fracture [Unknown]
  - Upper limb fracture [Unknown]
  - Sternal fracture [Unknown]
  - Lower limb fracture [Unknown]
  - Foot fracture [Unknown]
  - Arthritis [Unknown]
  - Diabetes mellitus [Unknown]
  - Liver disorder [Unknown]
